FAERS Safety Report 6570453-1 (Version None)
Quarter: 2010Q1

REPORT INFORMATION
  Report Type: 
  Country: None (occurrence: None)
  Receive Date: 20100204
  Receipt Date: 20090630
  Transmission Date: 20100710
  Serious: No
  Sender: FDA-Public Use
  Company Number: A0794663A

PATIENT
  Sex: Female

DRUGS (2)
  1. ARIXTRA [Suspect]
     Indication: DEEP VEIN THROMBOSIS
     Route: 058
  2. UNKNOWN [Concomitant]

REACTIONS (2)
  - LOCAL SWELLING [None]
  - URTICARIA [None]
